FAERS Safety Report 19630528 (Version 1)
Quarter: 2021Q3

REPORT INFORMATION
  Report Type: Spontaneous
  Country: CO (occurrence: CO)
  Receive Date: 20210729
  Receipt Date: 20210729
  Transmission Date: 20211014
  Serious: Yes (Hospitalization)
  Sender: FDA-Public Use
  Company Number: CO-BIOGEN-2021BI00971872

PATIENT
  Age: 1 Year
  Sex: Male
  Weight: 8.5 kg

DRUGS (2)
  1. SPINRAZA [Suspect]
     Active Substance: NUSINERSEN
     Indication: SPINAL MUSCULAR ATROPHY
     Route: 037
     Dates: start: 20201127, end: 20201221
  2. SPINRAZA [Suspect]
     Active Substance: NUSINERSEN
     Route: 037
     Dates: start: 20201127

REACTIONS (11)
  - Malnutrition [Unknown]
  - Cardiac arrest [Recovered/Resolved with Sequelae]
  - Bronchiolitis [Unknown]
  - Weight decreased [Unknown]
  - Aspiration [Unknown]
  - Respiratory arrest [Unknown]
  - Bacteraemia [Unknown]
  - Pneumonia [Recovered/Resolved]
  - Tracheostomy malfunction [Unknown]
  - Atelectasis [Unknown]
  - Diarrhoea [Unknown]

NARRATIVE: CASE EVENT DATE: 20201229
